FAERS Safety Report 9607280 (Version 1)
Quarter: 2013Q4

REPORT INFORMATION
  Report Type: Spontaneous
  Country: US (occurrence: US)
  Receive Date: 20131009
  Receipt Date: 20131009
  Transmission Date: 20140711
  Serious: Yes (Hospitalization)
  Sender: FDA-Public Use
  Company Number: US-BRISTOL-MYERS SQUIBB COMPANY-19458033

PATIENT
  Age: 78 Year
  Sex: Male
  Weight: 79.36 kg

DRUGS (1)
  1. COUMADIN [Suspect]

REACTIONS (1)
  - Convulsion [Unknown]
